FAERS Safety Report 9321660 (Version 1)
Quarter: 2013Q2

REPORT INFORMATION
  Report Type: Spontaneous
  Country: FR (occurrence: None)
  Receive Date: 20130529
  Receipt Date: 20130529
  Transmission Date: 20140414
  Serious: Yes (Hospitalization)
  Sender: FDA-Public Use
  Company Number: SYM-2013-04057

PATIENT
  Age: 40 Year
  Sex: Female

DRUGS (10)
  1. FLAGYL [Suspect]
     Indication: TUBO-OVARIAN ABSCESS
     Dosage: 3 DOSES IN ONE DAY.
     Dates: start: 20130406, end: 20130409
  2. VANCOMYCIN [Suspect]
     Indication: TUBO-OVARIAN ABSCESS
     Route: 042
     Dates: start: 20120321, end: 20130409
  3. ANTIBIOTICS (ANTIBIOTICS) [Suspect]
     Indication: TUBO-OVARIAN ABSCESS
     Dosage: TWO DOSES IN ONE DAY.
     Route: 042
     Dates: start: 20130406, end: 20130409
  4. DOXYCYCLINE (DOXYCYCLINE)(DOXYCYCLINE) [Concomitant]
  5. TAZOCILLINE (PIP/TAZO)(PIPERACILLIN SODIUM, TAZOBACTAM SODIUM) [Concomitant]
  6. TARDYFERON (FERROUS SULFATE)(FERROUS SULFATE) [Concomitant]
  7. INEXIUM (ESOMEPRAZOLE)(ESOMEPRAZOLE) [Concomitant]
  8. ZOPHREN (ONDANSETRON HYDROCHLORIDE)(ONDANSETRON HYDROCHLORIDE) [Concomitant]
  9. DOLIPRANE (PARACETAMOL)(PARACETAMOL) [Concomitant]
  10. LOVENOX (ENOXAPARIN SODIUM)(ENOXAPARIN SODIUM) [Concomitant]

REACTIONS (2)
  - Rash [None]
  - Toxic skin eruption [None]
